FAERS Safety Report 7511068-8 (Version None)
Quarter: 2011Q2

REPORT INFORMATION
  Report Type: 
  Country: None (occurrence: None)
  Receive Date: 20110531
  Receipt Date: 20110517
  Transmission Date: 20111010
  Serious: Yes (Other)
  Sender: FDA-Public Use
  Company Number: US-JNJFOC-20110507824

PATIENT
  Sex: Male
  Weight: 99.79 kg

DRUGS (2)
  1. REMICADE [Suspect]
     Route: 042
     Dates: start: 20020101
  2. REMICADE [Suspect]
     Indication: CROHN'S DISEASE
     Route: 042
     Dates: start: 20110101, end: 20110101

REACTIONS (5)
  - TYPE 2 DIABETES MELLITUS [None]
  - DYSPNOEA [None]
  - INFUSION RELATED REACTION [None]
  - DIZZINESS [None]
  - HYPERHIDROSIS [None]
